FAERS Safety Report 7396344-4 (Version None)
Quarter: 2011Q1

REPORT INFORMATION
  Report Type: 
  Country: None (occurrence: None)
  Receive Date: 20110331
  Receipt Date: 20110331
  Transmission Date: 20110831
  Serious: No
  Sender: FDA-Public Use
  Company Number: None

PATIENT
  Sex: Male
  Weight: 63.5036 kg

DRUGS (1)
  1. ARIXTRA [Suspect]
     Indication: THROMBOSIS
     Dosage: 7.5MG SYRINGE 1 DAILY 30 DAYS   30 DOSES 1 DAILY
     Dates: start: 20101119

REACTIONS (3)
  - AGGRESSION [None]
  - DYSKINESIA [None]
  - ABNORMAL BEHAVIOUR [None]
